FAERS Safety Report 14529945 (Version 2)
Quarter: 2018Q3

REPORT INFORMATION
  Report Type: Spontaneous
  Country: US (occurrence: US)
  Receive Date: 20180214
  Receipt Date: 20180920
  Transmission Date: 20181010
  Serious: No
  Sender: FDA-Public Use
  Company Number: US-IGSA-SR10005147

PATIENT
  Age: 79 Year
  Sex: Female
  Weight: 71 kg

DRUGS (10)
  1. PRAVASTATIN. [Concomitant]
     Active Substance: PRAVASTATIN
  2. HCTZ [Concomitant]
     Active Substance: HYDROCHLOROTHIAZIDE
  3. PROLASTIN?C [Suspect]
     Active Substance: .ALPHA.1-PROTEINASE INHIBITOR HUMAN
     Indication: ALPHA-1 ANTI-TRYPSIN DEFICIENCY
     Dosage: 4260 MG, Q.WK.
     Route: 042
     Dates: start: 201606
  4. LEVOTHYROXINE. [Concomitant]
     Active Substance: LEVOTHYROXINE
  5. CARVEDILOL. [Concomitant]
     Active Substance: CARVEDILOL
  6. FLECAINIDE [Concomitant]
     Active Substance: FLECAINIDE
  7. ELIQUIS [Concomitant]
     Active Substance: APIXABAN
  8. PROLASTIN?C [Suspect]
     Active Substance: .ALPHA.1-PROTEINASE INHIBITOR HUMAN
     Dosage: 4260 MG, Q.WK.
     Route: 042
     Dates: start: 201701
  9. DILTIAZEM CD [Concomitant]
     Active Substance: DILTIAZEM
  10. BENICAR [Concomitant]
     Active Substance: OLMESARTAN MEDOXOMIL

REACTIONS (1)
  - Weight increased [Not Recovered/Not Resolved]

NARRATIVE: CASE EVENT DATE: 20170101
